FAERS Safety Report 16697870 (Version 1)
Quarter: 2019Q3

REPORT INFORMATION
  Report Type: Other
  Country: US (occurrence: US)
  Receive Date: 20190813
  Receipt Date: 20190813
  Transmission Date: 20191004
  Serious: No
  Sender: FDA-Public Use
  Company Number: US-IMPAX LABORATORIES, LLC-2018-IPXL-04027

PATIENT
  Age: 71 Year
  Sex: Female

DRUGS (1)
  1. TERBUTALINE SULFATE. [Suspect]
     Active Substance: TERBUTALINE SULFATE
     Indication: ASTHMA
     Dosage: 5 MILLIGRAM
     Route: 048

REACTIONS (5)
  - Nausea [Unknown]
  - Product substitution issue [Unknown]
  - Palpitations [Unknown]
  - Headache [Unknown]
  - Heart rate increased [Unknown]
